FAERS Safety Report 25904591 (Version 1)
Quarter: 2025Q4

REPORT INFORMATION
  Report Type: Spontaneous
  Country: JP (occurrence: JP)
  Receive Date: 20251010
  Receipt Date: 20251010
  Transmission Date: 20260118
  Serious: Yes (Other)
  Sender: REGENERON
  Company Number: JP-BAYER-2025A079602

PATIENT
  Age: 73 Year
  Sex: Female

DRUGS (3)
  1. EYLEA HD [Suspect]
     Active Substance: AFLIBERCEPT
     Indication: Age-related macular degeneration
     Dosage: 8 MG, ONCE, BOTH EYES, SOLUTION FOR INJECTION, 114.3 MG/ML
     Route: 031
     Dates: start: 20241113, end: 20241113
  2. EYLEA HD [Suspect]
     Active Substance: AFLIBERCEPT
     Indication: Polypoidal choroidal vasculopathy
     Dosage: 8 MG, ONCE, LEFT EYE, TOTAL OF 3 DOSES PRIOR TO THE EVENT, SOLUTION FOR INJECTION, 114.3 MG/ML
     Route: 031
     Dates: start: 20250115, end: 20250115
  3. EYLEA HD [Suspect]
     Active Substance: AFLIBERCEPT
     Dosage: 8 MG, ONCE, RIGHT EYE, TOTAL OF 3 DOSES PRIOR TO THE EVENT, SOLUTION FOR INJECTION, 114.3 MG/ML
     Route: 031
     Dates: start: 20250122, end: 20250122

REACTIONS (5)
  - Angle closure glaucoma [Unknown]
  - Retinal vascular disorder [Recovered/Resolved]
  - Retinal vasculitis [Recovered/Resolved]
  - Retinal haemorrhage [Unknown]
  - Anterior chamber cell [Unknown]

NARRATIVE: CASE EVENT DATE: 20250214
